FAERS Safety Report 7530238-6 (Version None)
Quarter: 2011Q2

REPORT INFORMATION
  Report Type: 
  Country: None (occurrence: None)
  Receive Date: 20110607
  Receipt Date: 20110530
  Transmission Date: 20111010
  Serious: Yes (Hospitalization, Other)
  Sender: FDA-Public Use
  Company Number: PHHY2011RO46412

PATIENT
  Age: 42 Year
  Sex: Female

DRUGS (2)
  1. RIBAVIRIN [Suspect]
     Indication: ANTIVIRAL TREATMENT
     Dosage: 800 MG, DAILY
     Route: 048
  2. INTERFERON [Suspect]
     Indication: ANTIVIRAL TREATMENT

REACTIONS (18)
  - PROTEIN TOTAL DECREASED [None]
  - MALABSORPTION [None]
  - BLOOD POTASSIUM DECREASED [None]
  - BLOOD CALCIUM DECREASED [None]
  - GASTROINTESTINAL MUCOSAL DISORDER [None]
  - RASH PAPULAR [None]
  - RASH PRURITIC [None]
  - INTESTINAL VILLI ATROPHY [None]
  - ANAEMIA [None]
  - LEUKOPENIA [None]
  - DIARRHOEA [None]
  - DEHYDRATION [None]
  - MOUTH ULCERATION [None]
  - COELIAC DISEASE [None]
  - MACROCYTOSIS [None]
  - ABDOMINAL PAIN [None]
  - ASTHENIA [None]
  - WEIGHT DECREASED [None]
